FAERS Safety Report 7427176 (Version 3)
Quarter: 2012Q4

REPORT INFORMATION
  Report Type: 
  Country: US (occurrence: US)
  Receive Date: 20100621
  Receipt Date: 20120921
  Transmission Date: 20130627
  Serious: Yes (Other)
  Sender: FDA-Public Use
  Company Number: US-RB-011689-10

PATIENT
  Age: 26 None
  Sex: Female

DRUGS (2)
  1. SUBOXONE UNSPECIFIED [Suspect]
     Indication: DRUG DEPENDENCE
     Dosage: Daily dose known, unit dose and frequency unknown
     Route: 060
  2. SUBOXONE UNSPECIFIED [Suspect]
     Route: 060

REACTIONS (2)
  - Exposure during pregnancy [Recovered/Resolved]
  - Selective abortion [Recovered/Resolved]
